FAERS Safety Report 19169761 (Version 1)
Quarter: 2021Q2

REPORT INFORMATION
  Report Type: Spontaneous
  Country: US (occurrence: US)
  Receive Date: 20210422
  Receipt Date: 20210422
  Transmission Date: 20210717
  Serious: No
  Sender: FDA-Public Use
  Company Number: US-ASTELLAS-2020US016181

PATIENT
  Age: 40 Year
  Sex: Female

DRUGS (8)
  1. LEXISCAN [Suspect]
     Active Substance: REGADENOSON
     Indication: CARDIAC STRESS TEST
     Dosage: 0.4 MG, ONCE DAILY
     Route: 042
     Dates: start: 20200506, end: 20200506
  2. LEXISCAN [Suspect]
     Active Substance: REGADENOSON
     Indication: CARDIAC STRESS TEST
     Dosage: 0.4 MG, ONCE DAILY
     Route: 042
     Dates: start: 20200506, end: 20200506
  3. LEXISCAN [Suspect]
     Active Substance: REGADENOSON
     Dosage: 0.4 MG, UNKNOWN FREQ.
     Route: 042
     Dates: start: 20200506, end: 20200506
  4. LEXISCAN [Suspect]
     Active Substance: REGADENOSON
     Dosage: 0.4 MG, UNKNOWN FREQ.
     Route: 042
     Dates: start: 20200506, end: 20200506
  5. LEXISCAN [Suspect]
     Active Substance: REGADENOSON
     Dosage: 0.4 MG, UNKNOWN FREQ.
     Route: 042
     Dates: start: 20200506, end: 20200506
  6. LEXISCAN [Suspect]
     Active Substance: REGADENOSON
     Indication: CARDIAC STRESS TEST
     Dosage: 0.4 MG, ONCE DAILY
     Route: 042
     Dates: start: 20200506, end: 20200506
  7. LEXISCAN [Suspect]
     Active Substance: REGADENOSON
     Indication: CARDIAC STRESS TEST
     Dosage: 0.4 MG, ONCE DAILY
     Route: 042
     Dates: start: 20200506, end: 20200506
  8. LEXISCAN [Suspect]
     Active Substance: REGADENOSON
     Dosage: 0.4 MG, UNKNOWN FREQ.
     Route: 042
     Dates: start: 20200506, end: 20200506

REACTIONS (4)
  - Poor quality product administered [Unknown]
  - Extra dose administered [Unknown]
  - Injection site pain [Recovered/Resolved]
  - Product deposit [Unknown]

NARRATIVE: CASE EVENT DATE: 20200506
